FAERS Safety Report 16130504 (Version 1)
Quarter: 2019Q1

REPORT INFORMATION
  Report Type: Spontaneous
  Country: AU (occurrence: AU)
  Receive Date: 20190328
  Receipt Date: 20190328
  Transmission Date: 20190418
  Serious: Yes (Other)
  Sender: FDA-Public Use
  Company Number: AU-PFIZER INC-2019126684

PATIENT
  Age: 58 Year
  Sex: Female

DRUGS (1)
  1. XELJANZ [Suspect]
     Active Substance: TOFACITINIB CITRATE
     Indication: PSORIATIC ARTHROPATHY
     Dosage: 5 MG, 2X/DAY
     Dates: start: 20190312

REACTIONS (11)
  - Myalgia [Unknown]
  - Swelling [Unknown]
  - Peripheral swelling [Unknown]
  - Eye infection [Unknown]
  - Muscle spasms [Unknown]
  - Feeling abnormal [Unknown]
  - Parotid gland enlargement [Unknown]
  - Arthralgia [Unknown]
  - Pain in extremity [Unknown]
  - Sjogren^s syndrome [Unknown]
  - Fatigue [Unknown]
